FAERS Safety Report 13399345 (Version 3)
Quarter: 2018Q1

REPORT INFORMATION
  Report Type: Report from Study
  Country: CN (occurrence: CN)
  Receive Date: 20170404
  Receipt Date: 20180222
  Transmission Date: 20180508
  Serious: Yes (Other)
  Sender: FDA-Public Use
  Company Number: CN-ROCHE-1913656

PATIENT
  Sex: Female
  Weight: 57 kg

DRUGS (1)
  1. AVASTIN [Suspect]
     Active Substance: BEVACIZUMAB
     Indication: COLORECTAL CANCER
     Route: 041
     Dates: start: 20160614

REACTIONS (8)
  - Drug ineffective [Unknown]
  - White blood cell count decreased [Unknown]
  - Epistaxis [Unknown]
  - Weight decreased [Unknown]
  - Neoplasm progression [Unknown]
  - Gingival bleeding [Unknown]
  - Decreased appetite [Unknown]
  - Platelet count decreased [Unknown]
